FAERS Safety Report 8848315 (Version 1)
Quarter: 2012Q4

REPORT INFORMATION
  Report Type: 
  Country: GB (occurrence: GB)
  Receive Date: 20121019
  Receipt Date: 20121019
  Transmission Date: 20130627
  Serious: Yes (Other)
  Sender: FDA-Public Use
  Company Number: GB-MYLANLABS-2012S1021042

PATIENT
  Age: 16 Year
  Sex: Male

DRUGS (2)
  1. SUMATRIPTAN [Suspect]
     Indication: MIGRAINE
     Route: 048
     Dates: start: 20120903, end: 20120903
  2. DEPO-PROVERA [Concomitant]
     Indication: PRODUCT USED FOR UNKNOWN INDICATION
     Dosage: EVERY 12 WEEKS
     Route: 030

REACTIONS (2)
  - Pruritus [Recovered/Resolved]
  - Pharyngeal oedema [Recovered/Resolved]
